FAERS Safety Report 13966053 (Version 1)
Quarter: 2017Q3

REPORT INFORMATION
  Report Type: Spontaneous
  Country: US (occurrence: US)
  Receive Date: 20170913
  Receipt Date: 20170913
  Transmission Date: 20171128
  Serious: No
  Sender: FDA-Public Use
  Company Number: US-DRREDDYS-USA/USA/16/0082971

PATIENT
  Sex: Male

DRUGS (1)
  1. ATORVASTATIN TABLETS 10MG, 20 MG, 40 MG (091650) [Suspect]
     Active Substance: ATORVASTATIN
     Indication: HYPERCHOLESTEROLAEMIA
     Route: 048

REACTIONS (3)
  - Product contamination physical [Unknown]
  - Wrong technique in product usage process [Unknown]
  - Constipation [Unknown]
